FAERS Safety Report 17079855 (Version 1)
Quarter: 2019Q4

REPORT INFORMATION
  Report Type: Spontaneous
  Country: US (occurrence: US)
  Receive Date: 20191029
  Receipt Date: 20191029
  Transmission Date: 20200122
  Serious: Yes (Other)
  Sender: FDA-Public Use
  Company Number: None

PATIENT
  Age: 49 Year
  Sex: Female
  Weight: 68.04 kg

DRUGS (12)
  1. DEPLIN [Concomitant]
     Active Substance: LEVOMEFOLATE CALCIUM
  2. MSM [Concomitant]
     Active Substance: DIMETHYL SULFONE
  3. ZOLMITRIPTAN. [Suspect]
     Active Substance: ZOLMITRIPTAN
     Indication: MIGRAINE
     Dosage: ?          QUANTITY:5 MG MILLIGRAM(S);?
     Route: 048
     Dates: start: 20170616, end: 20181110
  4. FLAXSEED [Concomitant]
     Active Substance: FLAX SEED
  5. IRON [Concomitant]
     Active Substance: IRON
  6. FLONASE [Concomitant]
     Active Substance: FLUTICASONE PROPIONATE
  7. PROBIOTICS [Concomitant]
     Active Substance: PROBIOTICS NOS
  8. CITALOPRAM [Concomitant]
     Active Substance: CITALOPRAM HYDROBROMIDE
  9. VITAMIN B-2 [Concomitant]
  10. TOPAMAX [Concomitant]
     Active Substance: TOPIRAMATE
  11. TIZANADINE [Concomitant]
     Active Substance: TIZANIDINE
  12. CLONAZEPAM. [Concomitant]
     Active Substance: CLONAZEPAM

REACTIONS (3)
  - Lip swelling [None]
  - Throat tightness [None]
  - Dyspnoea [None]

NARRATIVE: CASE EVENT DATE: 20181110
